FAERS Safety Report 23882560 (Version 1)
Quarter: 2024Q2

REPORT INFORMATION
  Report Type: Spontaneous
  Country: DK (occurrence: DK)
  Receive Date: 20240522
  Receipt Date: 20240522
  Transmission Date: 20240716
  Serious: Yes (Death, Other)
  Sender: FDA-Public Use
  Company Number: DK-BAYER-2024A073997

PATIENT
  Age: 76 Year
  Sex: Female

DRUGS (7)
  1. RIVAROXABAN [Suspect]
     Active Substance: RIVAROXABAN
     Indication: Product used for unknown indication
     Dosage: 20 MG
     Route: 048
  2. POTASSIUM CHLORIDE [Concomitant]
     Active Substance: POTASSIUM CHLORIDE
     Dosage: 1500 MG
  3. LOSARTAN ^AGP^ [Concomitant]
     Dosage: 100 MG
  4. OXAZEPAM [Concomitant]
     Active Substance: OXAZEPAM
  5. MIRTAZAPINE ORIFARM [Concomitant]
     Dosage: 15 MG
  6. VORTIOXETINE [Concomitant]
     Active Substance: VORTIOXETINE
  7. FLUMAZENILUM [Concomitant]

REACTIONS (5)
  - Cerebral haemorrhage [Fatal]
  - Mixed anxiety and depressive disorder [Unknown]
  - Pneumonia [Unknown]
  - Seizure [Unknown]
  - Coma [Unknown]
